FAERS Safety Report 25867698 (Version 1)
Quarter: 2025Q4

REPORT INFORMATION
  Report Type: Report from Study
  Country: MX (occurrence: MX)
  Receive Date: 20251001
  Receipt Date: 20251001
  Transmission Date: 20260117
  Serious: Yes (Death)
  Sender: ROCHE
  Company Number: MX-ROCHE-10000396374

PATIENT

DRUGS (4)
  1. TOCILIZUMAB [Suspect]
     Active Substance: TOCILIZUMAB
     Indication: COVID-19
     Dosage: DOSE AND FREQUENCY WERE NOT REPORTED
     Route: 065
  2. TOCILIZUMAB [Suspect]
     Active Substance: TOCILIZUMAB
     Dosage: DOSE AND FREQUENCY WERE NOT REPORTED
     Route: 065
  3. RUXOLITINIB [Suspect]
     Active Substance: RUXOLITINIB
     Indication: COVID-19
     Route: 065
  4. BARICITINIB [Suspect]
     Active Substance: BARICITINIB
     Indication: COVID-19
     Route: 065

REACTIONS (7)
  - Escherichia infection [Fatal]
  - Klebsiella infection [Fatal]
  - Staphylococcal infection [Fatal]
  - Aspergillus infection [Fatal]
  - Acinetobacter infection [Fatal]
  - Pseudomonas infection [Fatal]
  - Off label use [Fatal]
